FAERS Safety Report 15485822 (Version 1)
Quarter: 2018Q4

REPORT INFORMATION
  Report Type: Spontaneous
  Country: US (occurrence: US)
  Receive Date: 20181010
  Receipt Date: 20181010
  Transmission Date: 20190205
  Serious: Yes (Other)
  Sender: FDA-Public Use
  Company Number: US-BAXTER-2017BAX041218

PATIENT
  Age: 41 Year
  Sex: Female

DRUGS (8)
  1. MIDAZOLAM HYDROCHLORIDE INJECTION, USP [Suspect]
     Active Substance: MIDAZOLAM HYDROCHLORIDE
     Indication: EPILEPSY
     Route: 041
  2. MIDAZOLAM HYDROCHLORIDE INJECTION, USP [Suspect]
     Active Substance: MIDAZOLAM HYDROCHLORIDE
     Dosage: DOSE INCREASED
     Route: 041
  3. KETAMINE [Concomitant]
     Active Substance: KETAMINE
     Indication: GENERALISED TONIC-CLONIC SEIZURE
  4. PHENOBARBITAL. [Concomitant]
     Active Substance: PHENOBARBITAL
     Indication: GENERALISED TONIC-CLONIC SEIZURE
  5. MIDAZOLAM HYDROCHLORIDE INJECTION, USP [Suspect]
     Active Substance: MIDAZOLAM HYDROCHLORIDE
     Indication: GENERALISED TONIC-CLONIC SEIZURE
     Dosage: LOWER DOSE (DOSE DECREASED)
     Route: 041
  6. PHENOBARBITAL. [Concomitant]
     Active Substance: PHENOBARBITAL
     Indication: EPILEPSY
     Dosage: HIGH DOSE
     Route: 065
  7. KETAMINE [Concomitant]
     Active Substance: KETAMINE
     Indication: EPILEPSY
     Dosage: HIGH DOSE
     Route: 065
  8. MIDAZOLAM HYDROCHLORIDE INJECTION, USP [Suspect]
     Active Substance: MIDAZOLAM HYDROCHLORIDE
     Dosage: DOSE DECREASED
     Route: 041

REACTIONS (1)
  - Metabolic acidosis [Recovered/Resolved]
